FAERS Safety Report 16634607 (Version 3)
Quarter: 2022Q3

REPORT INFORMATION
  Report Type: Report from Study
  Country: DO (occurrence: DO)
  Receive Date: 20190726
  Receipt Date: 20220704
  Transmission Date: 20221027
  Serious: Yes (Other)
  Sender: FDA-Public Use
  Company Number: DO-ABBVIE-19K-279-2822306-00

PATIENT
  Age: 42 Year
  Sex: Male
  Weight: 110.32 kg

DRUGS (3)
  1. HUMIRA [Suspect]
     Active Substance: ADALIMUMAB
     Indication: Ankylosing spondylitis
     Route: 058
     Dates: start: 20131007, end: 20220309
  2. VERAPAMIL [Concomitant]
     Active Substance: VERAPAMIL HYDROCHLORIDE
     Indication: Arrhythmia
     Route: 048
  3. METHOTREXATE [Concomitant]
     Active Substance: METHOTREXATE
     Indication: Ankylosing spondylitis
     Route: 048
     Dates: start: 2014

REACTIONS (14)
  - Uveitis [Recovered/Resolved]
  - Uveitis [Not Recovered/Not Resolved]
  - Gait disturbance [Unknown]
  - Insomnia [Not Recovered/Not Resolved]
  - Insomnia [Recovered/Resolved]
  - Musculoskeletal discomfort [Recovered/Resolved]
  - Headache [Recovered/Resolved]
  - Infection [Not Recovered/Not Resolved]
  - Pain in extremity [Not Recovered/Not Resolved]
  - Ankylosing spondylitis [Unknown]
  - Headache [Not Recovered/Not Resolved]
  - Arthralgia [Not Recovered/Not Resolved]
  - Chest pain [Not Recovered/Not Resolved]
  - Neck pain [Not Recovered/Not Resolved]

NARRATIVE: CASE EVENT DATE: 20140313
